FAERS Safety Report 8841229 (Version 1)
Quarter: 2012Q4

REPORT INFORMATION
  Report Type: Report from Study
  Country: DE (occurrence: DE)
  Receive Date: 20121015
  Receipt Date: 20121015
  Transmission Date: 20130627
  Serious: Yes (Other)
  Sender: FDA-Public Use
  Company Number: DE-ROCHE-1144553

PATIENT
  Age: 26 Year
  Sex: Female
  Weight: 54 kg

DRUGS (2)
  1. RITUXIMAB [Suspect]
     Indication: B-CELL LYMPHOMA
     Route: 042
     Dates: start: 20110822
  2. BENDAMUSTINE [Suspect]
     Indication: B-CELL LYMPHOMA
     Route: 042
     Dates: start: 20110823, end: 20120125

REACTIONS (8)
  - Pyrexia [Unknown]
  - Chills [Unknown]
  - Pain [Unknown]
  - Leukopenia [Unknown]
  - Viral infection [Unknown]
  - Cardiovascular disorder [Unknown]
  - Abortion spontaneous [Unknown]
  - Exposure during pregnancy [Unknown]
